FAERS Safety Report 7279874-5 (Version None)
Quarter: 2011Q1

REPORT INFORMATION
  Report Type: 
  Country: None (occurrence: None)
  Receive Date: 20110203
  Receipt Date: 20110203
  Transmission Date: 20110831
  Serious: Yes (Death, Hospitalization)
  Sender: FDA-Public Use
  Company Number: None

PATIENT
  Sex: Male

DRUGS (9)
  1. DILTIAZEM [Concomitant]
  2. TERAZOSIN [Concomitant]
  3. ASA, [Concomitant]
  4. REVLIMID [Suspect]
     Indication: MULTIPLE MYELOMA
     Dosage: REVLIMID 15MG PO DAILY X 21D ORAL
     Route: 048
     Dates: start: 20100609, end: 20100617
  5. DEXAMETHASONE [Concomitant]
  6. PHOSLO [Concomitant]
  7. OMEPRAZOLE [Concomitant]
  8. QVAR 40 [Concomitant]
  9. VELCADE [Concomitant]

REACTIONS (7)
  - PYREXIA [None]
  - RENAL IMPAIRMENT [None]
  - FLUID OVERLOAD [None]
  - ANAEMIA [None]
  - DIALYSIS [None]
  - DYSPNOEA [None]
  - DYSPNOEA EXERTIONAL [None]
